FAERS Safety Report 20933106 (Version 1)
Quarter: 2022Q2

REPORT INFORMATION
  Report Type: Spontaneous
  Country: US (occurrence: US)
  Receive Date: 20220608
  Receipt Date: 20220608
  Transmission Date: 20220721
  Serious: Yes (Death, Hospitalization)
  Sender: FDA-Public Use
  Company Number: US-KARYOPHARM-2022KPT000625

PATIENT

DRUGS (24)
  1. XPOVIO [Suspect]
     Active Substance: SELINEXOR
     Indication: Plasma cell myeloma
     Dosage: 100 MG, WEEKLY
     Route: 048
     Dates: start: 202205, end: 2022
  2. ACYCLOVIR [Concomitant]
     Active Substance: ACYCLOVIR
  3. AMOXICILLIN\CLAVULANIC ACID [Concomitant]
     Active Substance: AMOXICILLIN\CLAVULANIC ACID
  4. ATORVASTATIN [Concomitant]
     Active Substance: ATORVASTATIN
  5. BUPROPION HYDROCHLORIDE [Concomitant]
     Active Substance: BUPROPION HYDROCHLORIDE
  6. COUMADIN [Concomitant]
     Active Substance: WARFARIN SODIUM
  7. DEXAMETHASONE [Concomitant]
     Active Substance: DEXAMETHASONE
  8. FLUOXETINE [Concomitant]
     Active Substance: FLUOXETINE HYDROCHLORIDE
  9. FUROSEMIDE [Concomitant]
     Active Substance: FUROSEMIDE
  10. KENALOG [Concomitant]
     Active Substance: TRIAMCINOLONE ACETONIDE
  11. KETOCONAZOLE [Concomitant]
     Active Substance: KETOCONAZOLE
  12. LEVOTHYROXINE [Concomitant]
     Active Substance: LEVOTHYROXINE
  13. LISINOPRIL [Concomitant]
     Active Substance: LISINOPRIL
  14. LOMOTIL [Concomitant]
     Active Substance: ATROPINE SULFATE\DIPHENOXYLATE HYDROCHLORIDE
  15. LOVENOX [Concomitant]
     Active Substance: ENOXAPARIN SODIUM
  16. ONDANSETRON [Concomitant]
     Active Substance: ONDANSETRON
  17. PANTOPRAZOLE [Concomitant]
     Active Substance: PANTOPRAZOLE
  18. PROAIR RESPICLICK [Concomitant]
     Active Substance: ALBUTEROL SULFATE
  19. PROMETHAZINE [Concomitant]
     Active Substance: PROMETHAZINE HYDROCHLORIDE
  20. PROVENTIL HFA [Concomitant]
     Active Substance: ALBUTEROL SULFATE
  21. VELCADE [Concomitant]
     Active Substance: BORTEZOMIB
  22. WELLBUTRIN [Concomitant]
     Active Substance: BUPROPION HYDROCHLORIDE
  23. XGEVA [Concomitant]
     Active Substance: DENOSUMAB
  24. POTASSIUM CHLORIDE [Concomitant]
     Active Substance: POTASSIUM CHLORIDE

REACTIONS (2)
  - Death [Fatal]
  - Back pain [Unknown]

NARRATIVE: CASE EVENT DATE: 20220531
